FAERS Safety Report 8177227-9 (Version None)
Quarter: 2012Q1

REPORT INFORMATION
  Report Type: 
  Country: None (occurrence: None)
  Receive Date: 20120124
  Receipt Date: 20111005
  Transmission Date: 20120608
  Serious: No
  Sender: FDA-Public Use
  Company Number: US-006493

PATIENT
  Age: 68 Year
  Sex: Male
  Weight: 112 kg

DRUGS (4)
  1. XOLAIR [Concomitant]
  2. DEGARELIX (240 MG, 80 MG) [Suspect]
     Indication: PROSTATE CANCER
     Dosage: (240 MG 1X)
     Dates: start: 20110527, end: 20110527
  3. DEGARELIX (240 MG, 80 MG) [Suspect]
     Indication: PROSTATE CANCER
     Dosage: (240 MG 1X)
     Dates: start: 20110601, end: 20110601
  4. DEGARELIX [Suspect]

REACTIONS (1)
  - OSTEOARTHRITIS [None]
